FAERS Safety Report 9302087 (Version 2)
Quarter: 2013Q4

REPORT INFORMATION
  Report Type: Spontaneous
  Country: US (occurrence: US)
  Receive Date: 20130521
  Receipt Date: 20131107
  Transmission Date: 20140711
  Serious: Yes (Hospitalization)
  Sender: FDA-Public Use
  Company Number: US-B.I. PHARMACEUTICALS,INC./RIDGEFIELD-2013-BI-13957BP

PATIENT
  Age: 91 Year
  Sex: Female
  Weight: 69.85 kg

DRUGS (5)
  1. PRADAXA [Suspect]
     Indication: ANTICOAGULANT THERAPY
     Dosage: 150 MG
     Route: 048
     Dates: start: 20111006, end: 20120919
  2. PRADAXA [Suspect]
     Indication: ATRIAL FIBRILLATION
  3. LASIX [Concomitant]
  4. PERIDEX [Concomitant]
  5. PRAVASTATIN [Concomitant]

REACTIONS (4)
  - Intracranial haematoma [Unknown]
  - Syncope [Unknown]
  - Fall [Unknown]
  - Haemorrhage intracranial [Unknown]
